FAERS Safety Report 8401258 (Version 2)
Quarter: 2012Q4

REPORT INFORMATION
  Report Type: 
  Country: US (occurrence: US)
  Receive Date: 20120210
  Receipt Date: 20120830
  Transmission Date: 20130627
  Serious: Yes (Hospitalization)
  Sender: FDA-Public Use
  Company Number: US-US-EMD SERONO, INC.-7111315

PATIENT
  Age: 48 None
  Sex: Female

DRUGS (1)
  1. REBIF [Suspect]
     Indication: MULTIPLE SCLEROSIS
     Route: 058
     Dates: end: 201110

REACTIONS (3)
  - Salmonellosis [Recovered/Resolved]
  - Intestinal obstruction [Recovered/Resolved]
  - Faeces hard [Recovered/Resolved]
